FAERS Safety Report 5929412-1 (Version None)
Quarter: 2008Q3

REPORT INFORMATION
  Report Type: 
  Country: None (occurrence: None)
  Receive Date: 20080922
  Receipt Date: 20080225
  Transmission Date: 20090109
  Serious: Yes (Other)
  Sender: FDA-Public Use
  Company Number: PHEH2006US03688

PATIENT
  Sex: Female

DRUGS (5)
  1. MIACALCIN [Suspect]
     Indication: OSTEOPOROSIS
     Dosage: 200 IU, QD, INTRANASAL
     Dates: start: 20060101
  2. MIACALCIN [Suspect]
     Indication: OSTEOPOROSIS
     Dosage: 200 IU, QD, INTRANASAL
     Dates: start: 20070201
  3. CALCIUM (CALCIUM) [Concomitant]
  4. TOPROL-XL [Concomitant]
  5. PROTONIX [Concomitant]

REACTIONS (8)
  - BLOOD PRESSURE INCREASED [None]
  - DYSPHONIA [None]
  - EPISTAXIS [None]
  - NASAL DISCOMFORT [None]
  - NASAL ULCER [None]
  - OROPHARYNGEAL PAIN [None]
  - RHINORRHOEA [None]
  - SNEEZING [None]
